FAERS Safety Report 25219916 (Version 1)
Quarter: 2025Q2

REPORT INFORMATION
  Report Type: Spontaneous
  Country: JP (occurrence: JP)
  Receive Date: 20250421
  Receipt Date: 20250421
  Transmission Date: 20250717
  Serious: Yes (Hospitalization)
  Sender: BAUSCH AND LOMB
  Company Number: JP-MLMSERVICE-20250407-PI472378-00039-1

PATIENT
  Age: 97 Year
  Sex: Female
  Weight: 37.8 kg

DRUGS (7)
  1. ACYCLOVIR [Suspect]
     Active Substance: ACYCLOVIR
     Indication: Herpes zoster disseminated
     Route: 042
  2. VALACYCLOVIR [Suspect]
     Active Substance: VALACYCLOVIR HYDROCHLORIDE
     Indication: Herpes zoster
     Route: 048
  3. VALACYCLOVIR [Suspect]
     Active Substance: VALACYCLOVIR HYDROCHLORIDE
     Dosage: THREE DAYS BEFORE ADMISSION
     Route: 048
  4. LOXOPROFEN [Suspect]
     Active Substance: LOXOPROFEN
     Indication: Herpes zoster
     Route: 048
  5. LOXOPROFEN [Suspect]
     Active Substance: LOXOPROFEN
     Indication: Pain
     Route: 065
  6. LOXOPROFEN [Suspect]
     Active Substance: LOXOPROFEN
     Dosage: THREE DAYS BEFORE ADMISSION
     Route: 048
  7. ACETAMINOPHEN [Concomitant]
     Active Substance: ACETAMINOPHEN
     Indication: Pain
     Route: 048

REACTIONS (2)
  - Toxic encephalopathy [Recovering/Resolving]
  - Acute kidney injury [Recovering/Resolving]
